FAERS Safety Report 22350793 (Version 1)
Quarter: 2023Q2

REPORT INFORMATION
  Report Type: Spontaneous
  Country: US (occurrence: US)
  Receive Date: 20230522
  Receipt Date: 20230522
  Transmission Date: 20230722
  Serious: No
  Sender: FDA-Public Use
  Company Number: US-SA-SAC20230518001022

PATIENT
  Sex: Female

DRUGS (1)
  1. DUPIXENT [Suspect]
     Active Substance: DUPILUMAB
     Dosage: 300 MG OTHER
     Route: 058
     Dates: end: 202304

REACTIONS (5)
  - Weight increased [Unknown]
  - Asthma [Unknown]
  - Therapeutic response decreased [Unknown]
  - Urticaria [Unknown]
  - Pruritus [Unknown]
